FAERS Safety Report 25405013 (Version 1)
Quarter: 2025Q2

REPORT INFORMATION
  Report Type: Spontaneous
  Country: CN (occurrence: CN)
  Receive Date: 20250606
  Receipt Date: 20250606
  Transmission Date: 20250716
  Serious: Yes (Other)
  Sender: RANBAXY
  Company Number: CN-SUN PHARMACEUTICAL INDUSTRIES LTD-2025R1-509799

PATIENT
  Age: 25 Year
  Sex: Female
  Weight: 59.5 kg

DRUGS (4)
  1. ASPIRIN [Suspect]
     Active Substance: ASPIRIN
     Indication: Thrombosis prophylaxis
     Route: 048
  2. PROGESTERONE [Suspect]
     Active Substance: PROGESTERONE
     Indication: Luteal phase deficiency
     Dosage: 20 MILLIGRAM, QD
     Route: 030
  3. DUPHASTON [Suspect]
     Active Substance: DYDROGESTERONE
     Indication: Luteal phase deficiency
     Dosage: 10 MILLIGRAM, TID
     Route: 048
  4. UTROGESTAN [Suspect]
     Active Substance: PROGESTERONE
     Indication: Luteal phase deficiency
     Route: 067

REACTIONS (5)
  - Exposure during pregnancy [Unknown]
  - Vaginal haemorrhage [Unknown]
  - Gestational hypertension [Unknown]
  - Premature rupture of membranes [Unknown]
  - Premature delivery [Unknown]
